FAERS Safety Report 21170578 (Version 1)
Quarter: 2022Q3

REPORT INFORMATION
  Report Type: Report from Study
  Country: GB (occurrence: GB)
  Receive Date: 20220804
  Receipt Date: 20220804
  Transmission Date: 20221027
  Serious: Yes (Other)
  Sender: FDA-Public Use
  Company Number: GB-SUN PHARMACEUTICAL INDUSTRIES LTD-2022RR-347482

PATIENT
  Sex: Male

DRUGS (2)
  1. TILDRAKIZUMAB [Suspect]
     Active Substance: TILDRAKIZUMAB
     Indication: Psoriasis
     Dosage: 100 MILLIGRAM, 1 IN 12 WKS
     Route: 058
     Dates: start: 202202
  2. TILDRAKIZUMAB [Suspect]
     Active Substance: TILDRAKIZUMAB
     Dosage: 2 INDUCTION DOSES (12 PFS) INSTEAD OF 1 INDUCTION DOSE AND 2 MAINTENANCE DOSES (10 PFS)
     Route: 058

REACTIONS (2)
  - Incorrect dose administered [Unknown]
  - Product label issue [Unknown]
